FAERS Safety Report 22227425 (Version 1)
Quarter: 2023Q2

REPORT INFORMATION
  Report Type: Spontaneous
  Country: US (occurrence: US)
  Receive Date: 20230419
  Receipt Date: 20230419
  Transmission Date: 20230721
  Serious: Yes (Hospitalization)
  Sender: FDA-Public Use
  Company Number: US-BIOGEN-2023BI01199629

PATIENT
  Age: 2 Year
  Sex: Female

DRUGS (14)
  1. SPINRAZA [Suspect]
     Active Substance: NUSINERSEN
     Indication: Spinal muscular atrophy
     Dosage: LOADING DOSE
     Route: 050
     Dates: start: 2015
  2. SPINRAZA [Suspect]
     Active Substance: NUSINERSEN
     Dosage: LOADING DOSE
     Route: 050
  3. SPINRAZA [Suspect]
     Active Substance: NUSINERSEN
     Dosage: INTRATHECAL
     Route: 050
  4. SPINRAZA [Suspect]
     Active Substance: NUSINERSEN
     Dosage: LOADING DOSE
     Route: 050
  5. SPINRAZA [Suspect]
     Active Substance: NUSINERSEN
     Dosage: MAINTENANCE DOSE
     Route: 050
  6. RISDIPLAM [Concomitant]
     Active Substance: RISDIPLAM
     Indication: Product used for unknown indication
     Route: 050
     Dates: start: 202102
  7. PULMICORT FLEXHALER [Concomitant]
     Active Substance: BUDESONIDE
     Indication: Product used for unknown indication
     Dosage: 180 MCG/INHALATION, PRN
     Route: 050
  8. ACETYLCYSTEINE [Concomitant]
     Active Substance: ACETYLCYSTEINE
     Indication: Product used for unknown indication
     Dosage: 10% INHALATION SOLUTION?PRN INHALE 2 ML (200 MG) 2 TIMES DAILY
     Route: 050
  9. EVRYSDI [Concomitant]
     Active Substance: RISDIPLAM
     Indication: Spinal muscular atrophy
     Dosage: 0.75 MG/ML ORAL LIQUID?GIVE 4 MG A DAY
     Route: 050
  10. FLUTICASONE [Concomitant]
     Active Substance: FLUTICASONE
     Indication: Product used for unknown indication
     Dosage: 50 MCG/INHALATION?USE 1 SPRAY IN EACH NOSTRIL ONCE DAILY AS NEEDED
     Route: 050
  11. TAMIFLU [Concomitant]
     Active Substance: OSELTAMIVIR PHOSPHATE
     Indication: Product used for unknown indication
     Dosage: 6 MG/ML ORAL SUSPENSION?GIVE 45 MG 3 TIMES A DAY FOR 5 DAYS
     Route: 050
  12. LEVALBUTEROL [Concomitant]
     Active Substance: LEVALBUTEROL
     Indication: Wheezing
     Dosage: 0.63 MG/3 ML INHALATION SOLUTION?INHALE 3 ML (0.63 MG) BY NEBULIZER EVERY 4 HOURS AS NEEDED FOR W...
     Route: 050
  13. PULMOZYME [Concomitant]
     Active Substance: DORNASE ALFA
     Indication: Restrictive pulmonary disease
     Dosage: 2.5 MG/2.5 ML INHALATION SOLUTION?INHALE 2.5 ML (2.5 MG) DAILY
     Route: 050
  14. EPIPEN [Concomitant]
     Active Substance: EPINEPHRINE
     Indication: Product used for unknown indication
     Dosage: PRN
     Route: 050

REACTIONS (4)
  - Respiratory distress [Unknown]
  - Abdominal distension [Unknown]
  - Rhinorrhoea [Unknown]
  - Supraventricular extrasystoles [Unknown]

NARRATIVE: CASE EVENT DATE: 20180410
